FAERS Safety Report 24270587 (Version 3)
Quarter: 2025Q1

REPORT INFORMATION
  Report Type: Report from Study
  Country: US (occurrence: US)
  Receive Date: 20240831
  Receipt Date: 20250331
  Transmission Date: 20250408
  Serious: Yes (Hospitalization)
  Sender: ABBVIE
  Company Number: US-ABBVIE-5897155

PATIENT
  Age: 76 Year
  Sex: Male

DRUGS (2)
  1. CREON [Suspect]
     Active Substance: PANCRELIPASE AMYLASE\PANCRELIPASE LIPASE\PANCRELIPASE PROTEASE
     Indication: Pancreatic failure
     Route: 048
     Dates: start: 20230401
  2. CREON [Suspect]
     Active Substance: PANCRELIPASE AMYLASE\PANCRELIPASE LIPASE\PANCRELIPASE PROTEASE
     Indication: Pancreatic failure
     Route: 048
     Dates: start: 20230418

REACTIONS (13)
  - Blood magnesium decreased [Unknown]
  - Dizziness [Unknown]
  - Diarrhoea [Not Recovered/Not Resolved]
  - Mental impairment [Unknown]
  - Muscular weakness [Unknown]
  - Malaise [Unknown]
  - Dehydration [Unknown]
  - Weight decreased [Unknown]
  - Blood potassium decreased [Unknown]
  - Asthenia [Unknown]
  - Balance disorder [Unknown]
  - Muscle spasms [Not Recovered/Not Resolved]
  - Pollakiuria [Unknown]

NARRATIVE: CASE EVENT DATE: 20230418
